FAERS Safety Report 5186715-9 (Version None)
Quarter: 2006Q4

REPORT INFORMATION
  Report Type: 
  Country: None (occurrence: None)
  Receive Date: 20061212
  Receipt Date: 20061129
  Transmission Date: 20070319
  Serious: Yes (Other)
  Sender: FDA-Public Use
  Company Number: 2006BH014796

PATIENT

DRUGS (1)
  1. TISSEEL VH KIT [Suspect]
     Indication: PANCREATICODUODENECTOMY

REACTIONS (2)
  - ANASTOMOTIC LEAK [None]
  - FISTULA [None]
